FAERS Safety Report 8315257-4 (Version None)
Quarter: 2012Q2

REPORT INFORMATION
  Report Type: 
  Country: None (occurrence: None)
  Receive Date: 20120426
  Receipt Date: 20120413
  Transmission Date: 20120825
  Serious: Yes (Death)
  Sender: FDA-Public Use
  Company Number: PHHY2012IL031864

PATIENT
  Age: 26 Year
  Sex: Female

DRUGS (2)
  1. OCTREOTIDE ACETATE [Suspect]
     Dosage: 500 UG, TID
     Route: 058
  2. METYRAPONE [Suspect]
     Indication: CUSHING'S SYNDROME
     Dosage: 3 G, DAILY

REACTIONS (2)
  - HEPATIC FAILURE [None]
  - DRUG INEFFECTIVE [None]
